FAERS Safety Report 12136597 (Version 1)
Quarter: 2016Q1

REPORT INFORMATION
  Report Type: Spontaneous
  Country: US (occurrence: None)
  Receive Date: 20160301
  Receipt Date: 20160301
  Transmission Date: 20160526
  Serious: Yes (Disabling)
  Sender: FDA-Public Use
  Company Number: None

PATIENT
  Age: 44 Year
  Sex: Male
  Weight: 80.29 kg

DRUGS (3)
  1. EQUATE MULTI VITAMINS [Concomitant]
  2. BUPROPRION HYDROCHLORIDE [Concomitant]
  3. PAROXETINE [Suspect]
     Active Substance: PAROXETINE\PAROXETINE HYDROCHLORIDE
     Indication: MAJOR DEPRESSION
     Route: 048
     Dates: start: 20160201, end: 20160227

REACTIONS (4)
  - Sedation [None]
  - Weight decreased [None]
  - Product substitution issue [None]
  - Lower respiratory tract congestion [None]
